FAERS Safety Report 6220196-9 (Version None)
Quarter: 2009Q2

REPORT INFORMATION
  Report Type: 
  Country: None (occurrence: None)
  Receive Date: 20090605
  Receipt Date: 20090528
  Transmission Date: 20091009
  Serious: Yes (Hospitalization, Other)
  Sender: FDA-Public Use
  Company Number: JP-2009-1162

PATIENT
  Sex: Female

DRUGS (2)
  1. NAVELBINE [Suspect]
     Indication: METASTASES TO LUNG
  2. CISPLATIN. MFR. NOT SPECIFIED [Suspect]
     Indication: METASTASES TO LUNG

REACTIONS (4)
  - PANCYTOPENIA [None]
  - PNEUMONIA ASPIRATION [None]
  - RENAL FAILURE [None]
  - THROMBOTIC THROMBOCYTOPENIC PURPURA [None]
